FAERS Safety Report 6803259-6 (Version None)
Quarter: 2010Q2

REPORT INFORMATION
  Report Type: 
  Country: None (occurrence: None)
  Receive Date: 20100628
  Receipt Date: 20090901
  Transmission Date: 20101027
  Serious: No
  Sender: FDA-Public Use
  Company Number: US-ASTRAZENECA-2009SE10970

PATIENT
  Age: 85 Year
  Sex: Male
  Weight: 74.8 kg

DRUGS (6)
  1. ZOLADEX [Suspect]
     Indication: PROSTATE CANCER
     Route: 058
     Dates: start: 20090101, end: 20090501
  2. ATENOLOL [Concomitant]
  3. LIBRIUM [Concomitant]
  4. DALMANE [Concomitant]
     Indication: SLEEP DISORDER
  5. AVAPRO [Concomitant]
     Indication: HYPERTENSION
  6. AVALIDE [Concomitant]
     Indication: HYPERTENSION

REACTIONS (5)
  - ARTHRALGIA [None]
  - ASTHENIA [None]
  - BLOOD SODIUM DECREASED [None]
  - HYPERTENSION [None]
  - NIGHT SWEATS [None]
